FAERS Safety Report 18335615 (Version 2)
Quarter: 2021Q3

REPORT INFORMATION
  Report Type: Spontaneous
  Country: AU (occurrence: AU)
  Receive Date: 20201001
  Receipt Date: 20210714
  Transmission Date: 20211014
  Serious: Yes (Other)
  Sender: FDA-Public Use
  Company Number: AU-PFIZER INC-2020378404

PATIENT
  Age: 77 Year
  Sex: Female

DRUGS (5)
  1. TIAPROFENIC ACID [Interacting]
     Active Substance: TIAPROFENIC ACID
     Dosage: 300 MG, DAILY
  2. FUROSEMIDE. [Suspect]
     Active Substance: FUROSEMIDE
     Dosage: 80 MG, DAILY
  3. ALLOPURINOL. [Interacting]
     Active Substance: ALLOPURINOL
     Dosage: 300 MG, DAILY
  4. DIGOXIN. [Interacting]
     Active Substance: DIGOXIN
     Dosage: 250 UG, DAILY
  5. TRANDOLAPRIL. [Interacting]
     Active Substance: TRANDOLAPRIL
     Dosage: 1 MG, DAILY

REACTIONS (3)
  - Renal impairment [Unknown]
  - Cardioactive drug level increased [Unknown]
  - Drug interaction [Unknown]
